FAERS Safety Report 21026289 (Version 1)
Quarter: 2022Q2

REPORT INFORMATION
  Report Type: Other
  Country: US (occurrence: None)
  Receive Date: 20220630
  Receipt Date: 20220630
  Transmission Date: 20220721
  Serious: Yes (Hospitalization)
  Sender: FDA-Public Use
  Company Number: US-ROCHE-3126035

PATIENT
  Age: 74 Year
  Sex: Male

DRUGS (12)
  1. COTELLIC [Suspect]
     Active Substance: COBIMETINIB
     Indication: Malignant melanoma
     Route: 065
  2. COTELLIC [Suspect]
     Active Substance: COBIMETINIB
     Indication: Brain neoplasm malignant
  3. COTELLIC [Suspect]
     Active Substance: COBIMETINIB
     Indication: Sinus arrest
  4. COTELLIC [Suspect]
     Active Substance: COBIMETINIB
     Indication: Neovascular age-related macular degeneration
  5. COTELLIC [Suspect]
     Active Substance: COBIMETINIB
     Indication: Fall
  6. COTELLIC [Suspect]
     Active Substance: COBIMETINIB
     Indication: Hypothyroidism
  7. ZELBORAF [Suspect]
     Active Substance: VEMURAFENIB
     Indication: Malignant melanoma
     Dosage: TAKE 3 TABLET(S) BY MOUTH EVERY DAY FOR 3 WEEK(S) ON, 1 WEEK(S) OFF THEN REPEAT CYCLE
     Route: 048
  8. ZELBORAF [Suspect]
     Active Substance: VEMURAFENIB
     Indication: Brain neoplasm malignant
     Dosage: TAKE 4 TABLET(S) BY MOUTH EVERY 12 HOURS
     Route: 048
  9. ZELBORAF [Suspect]
     Active Substance: VEMURAFENIB
     Indication: Sinus arrest
  10. ZELBORAF [Suspect]
     Active Substance: VEMURAFENIB
     Indication: Neovascular age-related macular degeneration
  11. ZELBORAF [Suspect]
     Active Substance: VEMURAFENIB
     Indication: Fall
  12. ZELBORAF [Suspect]
     Active Substance: VEMURAFENIB
     Indication: Hypothyroidism

REACTIONS (1)
  - Pneumonia [Unknown]

NARRATIVE: CASE EVENT DATE: 20220613
